FAERS Safety Report 5051356-0 (Version None)
Quarter: 2006Q3

REPORT INFORMATION
  Report Type: 
  Country: None (occurrence: None)
  Receive Date: 20060714
  Receipt Date: 20060627
  Transmission Date: 20061208
  Serious: Yes (Other)
  Sender: FDA-Public Use
  Company Number: US-AMGEN-US184525

PATIENT
  Sex: Male
  Weight: 91.7 kg

DRUGS (13)
  1. PALIFERMIN [Suspect]
     Indication: STOMATITIS
     Route: 042
     Dates: start: 20060623, end: 20060630
  2. VICODIN [Concomitant]
     Route: 048
     Dates: start: 20060519
  3. LORAZEPAM [Concomitant]
     Route: 048
     Dates: start: 20060613
  4. VIBRAMYCIN [Concomitant]
     Route: 065
     Dates: start: 20060616
  5. SUDAFED 12 HOUR [Concomitant]
     Route: 048
     Dates: start: 20060616
  6. EQUATE [Concomitant]
     Route: 045
     Dates: start: 20060616
  7. LORTAB [Concomitant]
     Route: 048
  8. NEULASTA [Concomitant]
     Route: 058
     Dates: start: 20060628
  9. CISPLATIN [Concomitant]
     Dates: start: 20060627
  10. RADIATION THERAPY [Concomitant]
     Dates: start: 20060626
  11. ATIVAN [Concomitant]
  12. COMPAZINE [Concomitant]
     Route: 048
     Dates: start: 20060626
  13. REGLAN [Concomitant]
     Route: 048
     Dates: start: 20060626

REACTIONS (4)
  - CONSTIPATION [None]
  - DRUG HYPERSENSITIVITY [None]
  - HYPERSENSITIVITY [None]
  - RECTAL HAEMORRHAGE [None]
